FAERS Safety Report 10921729 (Version 3)
Quarter: 2016Q2

REPORT INFORMATION
  Report Type: Report from Study
  Country: BR (occurrence: BR)
  Receive Date: 20150317
  Receipt Date: 20160412
  Transmission Date: 20160815
  Serious: Yes (Other)
  Sender: FDA-Public Use
  Company Number: PHHY2015BR015615

PATIENT
  Age: 49 Year
  Sex: Female
  Weight: 62 kg

DRUGS (1)
  1. GILENYA [Suspect]
     Active Substance: FINGOLIMOD HYDROCHLORIDE
     Indication: MULTIPLE SCLEROSIS
     Dosage: 1 DF, QD
     Route: 048
     Dates: start: 20141218, end: 20150318

REACTIONS (10)
  - Restrictive pulmonary disease [Unknown]
  - Asthenia [Unknown]
  - Nodule [Unknown]
  - Pruritus [Unknown]
  - Solar dermatitis [Not Recovered/Not Resolved]
  - Rash [Unknown]
  - Hypotension [Unknown]
  - Blister [Unknown]
  - Dyspnoea [Recovered/Resolved]
  - Fatigue [Unknown]

NARRATIVE: CASE EVENT DATE: 20141218
